FAERS Safety Report 7626483-1 (Version None)
Quarter: 2011Q3

REPORT INFORMATION
  Report Type: 
  Country: None (occurrence: None)
  Receive Date: 20110721
  Receipt Date: 20110426
  Transmission Date: 20111222
  Serious: No
  Sender: FDA-Public Use
  Company Number: US-NOVEN-11US002367

PATIENT
  Sex: Female

DRUGS (1)
  1. FENTANYL [Suspect]
     Indication: OSTEOPOROSIS
     Dosage: 100 UG, Q72H
     Dates: start: 20110412, end: 20110419

REACTIONS (1)
  - SOMNOLENCE [None]
